FAERS Safety Report 24372845 (Version 1)
Quarter: 2024Q3

REPORT INFORMATION
  Report Type: Spontaneous
  Country: US (occurrence: US)
  Receive Date: 20240927
  Receipt Date: 20240927
  Transmission Date: 20241016
  Serious: No
  Sender: IPSEN
  Company Number: US-IPSEN Group, Research and Development-2024-18970

PATIENT
  Sex: Female
  Weight: 122.5 kg

DRUGS (11)
  1. IQIRVO [Suspect]
     Active Substance: ELAFIBRANOR
     Indication: Primary biliary cholangitis
     Dosage: 1 TABLET (80 MG TOTAL) BY MOUTH DAILY BEFORE BREAKFAST
     Route: 048
     Dates: start: 202408
  2. OCALIVA [Concomitant]
     Active Substance: OBETICHOLIC ACID
  3. MELATONIN [Concomitant]
     Active Substance: MELATONIN
  4. TYLENOL [Concomitant]
     Active Substance: ACETAMINOPHEN
  5. VITAMIN D3 [Concomitant]
     Active Substance: CHOLECALCIFEROL
  6. LEVOTHYROXINE SODIUM [Concomitant]
     Active Substance: LEVOTHYROXINE SODIUM
  7. SIMVASTATIN [Concomitant]
     Active Substance: SIMVASTATIN
  8. AMLODIPINE BESYLATE [Concomitant]
     Active Substance: AMLODIPINE BESYLATE
  9. ATENOLOL [Concomitant]
     Active Substance: ATENOLOL
  10. HYDROCHLOROTHIAZIDE\VALSARTAN [Concomitant]
     Active Substance: HYDROCHLOROTHIAZIDE\VALSARTAN
  11. ANASTROZOLE [Concomitant]
     Active Substance: ANASTROZOLE

REACTIONS (2)
  - Abdominal pain [Recovered/Resolved]
  - Arthralgia [Unknown]
